FAERS Safety Report 23976514 (Version 1)
Quarter: 2024Q2

REPORT INFORMATION
  Report Type: Spontaneous
  Country: JP (occurrence: JP)
  Receive Date: 20240614
  Receipt Date: 20240614
  Transmission Date: 20240716
  Serious: Yes (Hospitalization, Other)
  Sender: FDA-Public Use
  Company Number: JP-SUN PHARMACEUTICAL INDUSTRIES LTD-2024R1-450743

PATIENT
  Sex: Male

DRUGS (6)
  1. ACYCLOVIR [Suspect]
     Active Substance: ACYCLOVIR
     Indication: Herpes zoster
     Dosage: 750 MILLIGRAM, DAILY
     Route: 042
  2. ACYCLOVIR [Suspect]
     Active Substance: ACYCLOVIR
     Indication: Meningitis viral
     Dosage: 500 MILLIGRAM, DAILY
     Route: 042
  3. GATIFLOXACIN [Suspect]
     Active Substance: GATIFLOXACIN
     Indication: Herpes zoster
     Dosage: 20 MILLILITER, DAILY
     Route: 065
  4. GATIFLOXACIN [Suspect]
     Active Substance: GATIFLOXACIN
     Indication: Meningitis viral
  5. PREGABALIN [Suspect]
     Active Substance: PREGABALIN
     Indication: Herpes zoster
     Dosage: 50 MILLIGRAM, DAILY
     Route: 065
  6. PREGABALIN [Suspect]
     Active Substance: PREGABALIN
     Indication: Meningitis viral

REACTIONS (2)
  - Condition aggravated [Unknown]
  - Renal impairment [Unknown]
